FAERS Safety Report 6161919-7 (Version None)
Quarter: 2009Q2

REPORT INFORMATION
  Report Type: 
  Country: None (occurrence: None)
  Receive Date: 20090417
  Receipt Date: 20090417
  Transmission Date: 20091009
  Serious: No
  Sender: FDA-Public Use
  Company Number: None

PATIENT
  Age: 90 Year
  Sex: Female

DRUGS (2)
  1. RISPERIDONE [Suspect]
     Dosage: 1 AT 8PM PO
     Route: 048
  2. ZOLPIDEM [Suspect]
     Indication: SLEEP DISORDER
     Dosage: 1 HS PRN INSOMNIA PO
     Route: 048

REACTIONS (1)
  - FALL [None]
